FAERS Safety Report 19501148 (Version 3)
Quarter: 2021Q3

REPORT INFORMATION
  Report Type: Spontaneous
  Country: NL (occurrence: NL)
  Receive Date: 20210707
  Receipt Date: 20210820
  Transmission Date: 20211014
  Serious: Yes (Death)
  Sender: FDA-Public Use
  Company Number: NL-CELLTRION INC.-2021NL009111

PATIENT

DRUGS (5)
  1. INFLIXIMAB (UNKNOWN) [Suspect]
     Active Substance: INFLIXIMAB
     Indication: MILLER FISHER SYNDROME
     Dosage: 5 MILLIGRAM/KILOGRAM, SINGLE
     Route: 065
  2. RITUXIMAB (UNKNOWN) [Suspect]
     Active Substance: RITUXIMAB
     Indication: MILLER FISHER SYNDROME
     Dosage: 1000 MILLIGRAM EVERY TWO WEEKS
     Route: 065
  3. HUMAN IMMUNOGLOBULIN (GENERIC) [Suspect]
     Active Substance: HUMAN IMMUNOGLOBULIN G
     Indication: MILLER FISHER SYNDROME
     Dosage: 0.4 GRAM PER KILOGRAM, QD, 2 CYCLES
     Route: 042
  4. HUMAN IMMUNOGLOBULIN (GENERIC) [Suspect]
     Active Substance: HUMAN IMMUNOGLOBULIN G
     Dosage: 1 GRAM PER KILOGRAM IN 2 DAYS, 1 CYCLE
     Route: 042
  5. PREDNISONE. [Suspect]
     Active Substance: PREDNISONE
     Indication: MILLER FISHER SYNDROME
     Dosage: 1 MILLIGRAM/KILOGRAM, QD
     Route: 065

REACTIONS (3)
  - Pneumonia [Fatal]
  - Drug ineffective for unapproved indication [Fatal]
  - Off label use [Unknown]
